FAERS Safety Report 11870065 (Version 2)
Quarter: 2016Q1

REPORT INFORMATION
  Report Type: Spontaneous
  Country: US (occurrence: US)
  Receive Date: 20151228
  Receipt Date: 20160118
  Transmission Date: 20160526
  Serious: Yes (Hospitalization, Other)
  Sender: FDA-Public Use
  Company Number: US-AUROBINDO-AUR-APL-2015-11651

PATIENT
  Age: 42 Year
  Sex: Female

DRUGS (2)
  1. GARCINIA CAMBOGIA COMP [Suspect]
     Active Substance: DIETARY SUPPLEMENT
     Indication: WEIGHT DECREASED
     Route: 065
  2. HYDROCODONE BITARTRATE AND ACETAMINOPHEN 7.5 MG/325MG [Suspect]
     Active Substance: ACETAMINOPHEN\HYDROCODONE BITARTRATE
     Indication: BACK PAIN
     Dosage: 7.5 /325MG EVERY 4 TO 6 HOURS
     Route: 065

REACTIONS (5)
  - Nausea [Recovered/Resolved]
  - Hepatic enzyme increased [Recovered/Resolved]
  - Hepatitis acute [Recovered/Resolved]
  - Cold sweat [Recovered/Resolved]
  - Abdominal pain [Recovered/Resolved]
